FAERS Safety Report 7132334-4 (Version None)
Quarter: 2010Q4

REPORT INFORMATION
  Report Type: 
  Country: None (occurrence: None)
  Receive Date: 20101129
  Receipt Date: 20101129
  Transmission Date: 20110411
  Serious: Yes (Life-Threatening, Other)
  Sender: FDA-Public Use
  Company Number: None

PATIENT
  Age: 48 Year
  Sex: Female
  Weight: 69.8539 kg

DRUGS (4)
  1. AMIODARONE HCL [Suspect]
     Indication: CARDIAC FAILURE CONGESTIVE
     Dosage: 200 MG DAILY
     Dates: start: 20100401
  2. AMIODARONE HCL [Suspect]
     Indication: EJECTION FRACTION DECREASED
     Dosage: 200 MG DAILY
     Dates: start: 20100401
  3. AMIODARONE HCL [Suspect]
     Indication: CARDIAC FAILURE CONGESTIVE
     Dosage: 200 MG DAILY
     Dates: start: 20101001
  4. AMIODARONE HCL [Suspect]
     Indication: EJECTION FRACTION DECREASED
     Dosage: 200 MG DAILY
     Dates: start: 20101001

REACTIONS (6)
  - BLOOD PARATHYROID HORMONE INCREASED [None]
  - DYSPNOEA [None]
  - FATIGUE [None]
  - FIBRIN D DIMER INCREASED [None]
  - HYPOTENSION [None]
  - TRAUMATIC LUNG INJURY [None]
